FAERS Safety Report 9963876 (Version 1)
Quarter: 2014Q1

REPORT INFORMATION
  Report Type: Report from Study
  Country: US (occurrence: US)
  Receive Date: 20140305
  Receipt Date: 20140305
  Transmission Date: 20141002
  Serious: No
  Sender: FDA-Public Use
  Company Number: US-ABBVIE-13P-163-1119137-00

PATIENT
  Age: 72 Year
  Sex: Male

DRUGS (9)
  1. HUMIRA [Suspect]
     Indication: COLITIS ULCERATIVE
     Dates: start: 20130610
  2. UCERIS [Concomitant]
     Indication: COLITIS ULCERATIVE
     Dosage: 9MG DAILY
  3. ASACOL HD [Concomitant]
     Indication: PRODUCT USED FOR UNKNOWN INDICATION
  4. AMARYL [Concomitant]
     Indication: DIABETES MELLITUS
     Dosage: 2MG DAILY
  5. LASIX [Concomitant]
     Indication: FLUID RETENTION
     Dosage: 20MG DAILY
  6. FLOMAX [Concomitant]
     Indication: PRODUCT USED FOR UNKNOWN INDICATION
     Dosage: 4MG DAILY
  7. PROSCAR [Concomitant]
     Indication: PROSTATOMEGALY
     Dosage: 5MG DAILY
  8. LATANAPROST SOLUTION [Concomitant]
     Indication: ABNORMAL SENSATION IN EYE
     Dosage: 1 DROP IN EACH EYE
  9. ASPIRIN [Concomitant]
     Indication: PROPHYLAXIS
     Dosage: 81MG DAILY

REACTIONS (2)
  - Weight decreased [Not Recovered/Not Resolved]
  - Drug ineffective [Not Recovered/Not Resolved]
